FAERS Safety Report 7353304-7 (Version None)
Quarter: 2011Q1

REPORT INFORMATION
  Report Type: 
  Country: None (occurrence: None)
  Receive Date: 20110315
  Receipt Date: 20110228
  Transmission Date: 20110831
  Serious: Yes (Hospitalization, Other)
  Sender: FDA-Public Use
  Company Number: US-ACTELION-A-US2011-45711

PATIENT

DRUGS (2)
  1. TRACLEER [Suspect]
     Indication: PULMONARY ARTERIAL HYPERTENSION
     Dosage: UNK
     Route: 048
     Dates: start: 20070101
  2. TADALAFIL [Concomitant]

REACTIONS (11)
  - BODY TEMPERATURE INCREASED [None]
  - HIP ARTHROPLASTY [None]
  - SOMNOLENCE [None]
  - PLEURAL EFFUSION [None]
  - PNEUMONIA [None]
  - CONFUSIONAL STATE [None]
  - MASS [None]
  - ARTHRALGIA [None]
  - ATELECTASIS [None]
  - OXYGEN SATURATION DECREASED [None]
  - BONE DEVELOPMENT ABNORMAL [None]
